FAERS Safety Report 21639469 (Version 1)
Quarter: 2022Q4

REPORT INFORMATION
  Report Type: Report from Study
  Country: CN (occurrence: CN)
  Receive Date: 20221124
  Receipt Date: 20221124
  Transmission Date: 20230112
  Serious: Yes (Other)
  Sender: FDA-Public Use
  Company Number: CN-JNJFOC-20221138298

PATIENT
  Sex: Male

DRUGS (2)
  1. ABIRATERONE ACETATE [Suspect]
     Active Substance: ABIRATERONE ACETATE
     Indication: Prostate cancer metastatic
     Route: 048
  2. PREDNISOLONE [Suspect]
     Active Substance: PREDNISOLONE
     Indication: Prostate cancer metastatic
     Route: 065

REACTIONS (12)
  - Myelosuppression [Unknown]
  - Hypokalaemia [Unknown]
  - Cardiotoxicity [Unknown]
  - Alanine aminotransferase abnormal [Unknown]
  - Aspartate aminotransferase abnormal [Unknown]
  - Gamma-glutamyltransferase abnormal [Unknown]
  - Gastrointestinal disorder [Unknown]
  - Alopecia [Unknown]
  - Hypertension [Unknown]
  - Hyperglycaemia [Unknown]
  - Fluid retention [Unknown]
  - Fatigue [Unknown]
